FAERS Safety Report 21702038 (Version 6)
Quarter: 2023Q1

REPORT INFORMATION
  Report Type: Report from Study
  Country: JP (occurrence: JP)
  Receive Date: 20221208
  Receipt Date: 20230313
  Transmission Date: 20230418
  Serious: Yes (Hospitalization)
  Sender: FDA-Public Use
  Company Number: JP-JNJFOC-20221203174

PATIENT
  Age: 61 Year
  Sex: Male

DRUGS (28)
  1. AMIVANTAMAB [Suspect]
     Active Substance: AMIVANTAMAB
     Indication: Non-small cell lung cancer metastatic
     Dosage: 350MG ON 14-APR-2022, 1050 MG ON 15-APR-2022, 1700 MG FROM 28-APR-2022, AND 1400 MG ON 24-NOV-2022 (
     Route: 042
     Dates: start: 20220414, end: 20221124
  2. PEMETREXED [Suspect]
     Active Substance: PEMETREXED
     Indication: Non-small cell lung cancer metastatic
     Dosage: 14-APR-2022 500 MG/M2, FROM 05-JUN-2022 375 MG/M2 , AND FROM 13-JUL-2022 281.25 MG/M2 WITH THE MOST
     Route: 042
     Dates: start: 20220414, end: 20221124
  3. CARBOPLATIN [Concomitant]
     Active Substance: CARBOPLATIN
     Indication: Non-small cell lung cancer metastatic
     Dosage: ON 14-APR-2022 AUC 5, FROM 05-JUN-2022 AUC 3.75, WITH THE MOST RECENT DOSE ON 22-JUN-2022
     Route: 042
     Dates: start: 20220414, end: 20220622
  4. CHOLECALCIFEROL [Concomitant]
     Active Substance: CHOLECALCIFEROL
     Indication: Prophylaxis
     Route: 048
     Dates: start: 20220316
  5. TAMSULOSIN [Concomitant]
     Active Substance: TAMSULOSIN
     Indication: Benign prostatic hyperplasia
     Dosage: 1 TABLET
     Route: 048
     Dates: start: 20220712
  6. DUTASTERIDE [Concomitant]
     Active Substance: DUTASTERIDE
     Indication: Benign prostatic hyperplasia
     Dosage: 1 CAPSULE
     Route: 048
     Dates: start: 20220712
  7. NALDEMEDINE [Concomitant]
     Active Substance: NALDEMEDINE
     Indication: Constipation
     Route: 048
     Dates: start: 20221114
  8. FUROSEMIDE [Concomitant]
     Active Substance: FUROSEMIDE
     Indication: Oedema peripheral
     Route: 048
     Dates: start: 20221114
  9. FUROSEMIDE [Concomitant]
     Active Substance: FUROSEMIDE
     Indication: Face oedema
  10. LOXOPROFEN SODIUM DIHYDRATE [Concomitant]
     Active Substance: LOXOPROFEN SODIUM DIHYDRATE
     Indication: Spinal osteoarthritis
     Route: 048
     Dates: start: 20221114
  11. REBAMIPIDE [Concomitant]
     Active Substance: REBAMIPIDE
     Indication: Gastrointestinal disorder therapy
     Route: 048
     Dates: start: 20221114
  12. FEBUXOSTAT [Concomitant]
     Active Substance: FEBUXOSTAT
     Indication: Hyperuricaemia
     Route: 048
     Dates: start: 20220315
  13. ESOMEPRAZOLE MAGNESIUM [Concomitant]
     Active Substance: ESOMEPRAZOLE MAGNESIUM
     Indication: Gastrointestinal disorder therapy
     Route: 048
     Dates: start: 20220315
  14. MIROGABALIN BESYLATE [Concomitant]
     Active Substance: MIROGABALIN BESYLATE
     Indication: Neuralgia
     Route: 048
     Dates: start: 20220701, end: 20221216
  15. SODIUM GUALENATE [Concomitant]
     Active Substance: SODIUM GUALENATE
     Indication: Abdominal distension
     Route: 048
     Dates: start: 20220915
  16. MAGNESIUM OXIDE [Concomitant]
     Active Substance: MAGNESIUM OXIDE
     Indication: Constipation
     Route: 048
     Dates: start: 20221019
  17. SODIUM GUALENATE MONOHYDRATE [Concomitant]
     Active Substance: SODIUM GUALENATE MONOHYDRATE
     Indication: Prophylaxis
     Route: 061
     Dates: start: 20220415
  18. OXYTETRACYCLINE HYDROCHLORIDE [Concomitant]
     Active Substance: OXYTETRACYCLINE HYDROCHLORIDE
     Indication: Paronychia
     Route: 050
     Dates: start: 20220525
  19. CLOBETASOL PROPIONATE [Concomitant]
     Active Substance: CLOBETASOL PROPIONATE
     Indication: Paronychia
     Route: 050
     Dates: start: 20221005
  20. FENTANYL CITRATE [Concomitant]
     Active Substance: FENTANYL CITRATE
     Indication: Spinal osteoarthritis
     Route: 050
     Dates: start: 20221114
  21. KETOPROFEN [Concomitant]
     Active Substance: KETOPROFEN
     Indication: Spinal fracture
     Route: 050
     Dates: start: 20221111
  22. KETOPROFEN [Concomitant]
     Active Substance: KETOPROFEN
     Indication: Spinal osteoarthritis
     Route: 062
     Dates: start: 20221209
  23. KETOPROFEN [Concomitant]
     Active Substance: KETOPROFEN
     Indication: Lumbar vertebral fracture
  24. DIFLUPREDNATE [Concomitant]
     Active Substance: DIFLUPREDNATE
     Indication: Purpura
     Route: 050
     Dates: start: 20221114
  25. DECADRON [Concomitant]
     Active Substance: DEXAMETHASONE
     Indication: C-reactive protein increased
     Route: 048
     Dates: start: 20221019, end: 20221127
  26. UREA [Concomitant]
     Active Substance: UREA
     Indication: Paronychia
     Dosage: ^1^ DOSAGE NUMBER; NO DOSAGE UNIT
     Route: 062
     Dates: start: 20221207
  27. POTASSIUM ASPARTATE [Concomitant]
     Active Substance: POTASSIUM ASPARTATE
     Indication: Hypokalaemia
     Route: 048
     Dates: start: 20221220, end: 20221227
  28. TERIPARATIDE ACETATE [Concomitant]
     Active Substance: TERIPARATIDE ACETATE
     Indication: Osteoporosis
     Route: 058
     Dates: start: 20221223

REACTIONS (2)
  - C-reactive protein increased [Recovering/Resolving]
  - Lumbar vertebral fracture [Recovering/Resolving]

NARRATIVE: CASE EVENT DATE: 20221130
